FAERS Safety Report 26095874 (Version 1)
Quarter: 2025Q4

REPORT INFORMATION
  Report Type: Spontaneous
  Country: US (occurrence: US)
  Receive Date: 20251127
  Receipt Date: 20251127
  Transmission Date: 20260117
  Serious: Yes (Other)
  Sender: AMGEN
  Company Number: US-AMGEN-USASP2025230770

PATIENT
  Age: 60 Year
  Sex: Female

DRUGS (3)
  1. RITUXIMAB [Suspect]
     Active Substance: RITUXIMAB
     Indication: ADAMTS13 activity decreased
     Dosage: 375 MILLIGRAM/SQ. METER
     Route: 065
  2. ASPIRIN [Concomitant]
     Active Substance: ASPIRIN
  3. METHYLPREDNISOLONE [Concomitant]
     Active Substance: METHYLPREDNISOLONE
     Route: 040

REACTIONS (4)
  - Thrombotic thrombocytopenic purpura [Unknown]
  - ADAMTS13 activity decreased [Unknown]
  - Drug effective for unapproved indication [Unknown]
  - Off label use [Unknown]
